FAERS Safety Report 5412074-X (Version None)
Quarter: 2007Q3

REPORT INFORMATION
  Report Type: 
  Country: None (occurrence: None)
  Receive Date: 20070713
  Receipt Date: 20070327
  Transmission Date: 20080115
  Serious: No
  Sender: FDA-Public Use
  Company Number: 2007SP001097

PATIENT
  Age: 48 Year
  Sex: Female
  Weight: 70.3075 kg

DRUGS (9)
  1. LUNESTA [Suspect]
     Indication: INSOMNIA
     Dosage: 3 MG;PRN;ORAL, 1.5 MG;PRN;ORAL
     Route: 048
     Dates: start: 20060101
  2. LUNESTA [Suspect]
     Indication: INSOMNIA
     Dosage: 3 MG;PRN;ORAL, 1.5 MG;PRN;ORAL
     Route: 048
     Dates: start: 20060701
  3. VERAPAMIL [Suspect]
     Indication: HYPERTENSION
     Dosage: 40 MG; 80 MG
     Dates: start: 20070131, end: 20070201
  4. VERAPAMIL [Suspect]
     Indication: HYPERTENSION
     Dosage: 40 MG; 80 MG
     Dates: start: 20070201, end: 20070201
  5. SEASONIQUE [Suspect]
     Indication: PELVIC PAIN
     Dates: start: 20061201, end: 20070201
  6. LISINOPRIL [Concomitant]
  7. MORPHINE [Concomitant]
  8. LAXATIVE [Concomitant]
  9. CALCIUM [Concomitant]

REACTIONS (6)
  - DISTURBANCE IN ATTENTION [None]
  - DYSGEUSIA [None]
  - FATIGUE [None]
  - INSOMNIA [None]
  - NAUSEA [None]
  - SOMNOLENCE [None]
